FAERS Safety Report 22253415 (Version 2)
Quarter: 2025Q1

REPORT INFORMATION
  Report Type: Spontaneous
  Country: CA (occurrence: CA)
  Receive Date: 20230426
  Receipt Date: 20250306
  Transmission Date: 20250409
  Serious: Yes (Other)
  Sender: GRIFOLS
  Company Number: CA-IGSA-BIG0023127

PATIENT
  Age: 37 Year
  Sex: Female
  Weight: 47 kg

DRUGS (19)
  1. HUMAN IMMUNOGLOBULIN G [Suspect]
     Active Substance: HUMAN IMMUNOGLOBULIN G
     Indication: Product used for unknown indication
     Route: 042
  2. CAPECITABINE [Suspect]
     Active Substance: CAPECITABINE
     Indication: Product used for unknown indication
  3. KADCYLA [Suspect]
     Active Substance: ADO-TRASTUZUMAB EMTANSINE
     Indication: Breast cancer metastatic
     Dosage: 194 MILLIGRAM, Q.3WK.
     Route: 042
  4. KADCYLA [Suspect]
     Active Substance: ADO-TRASTUZUMAB EMTANSINE
     Dosage: 200 MILLIGRAM, Q.3WK.
     Route: 042
  5. KADCYLA [Suspect]
     Active Substance: ADO-TRASTUZUMAB EMTANSINE
     Dosage: 420 MILLIGRAM, Q.3WK.
     Route: 042
  6. PERJETA [Suspect]
     Active Substance: PERTUZUMAB
     Indication: Breast cancer metastatic
     Dosage: 840 MILLIGRAM, Q.3WK.
     Route: 042
  7. PERJETA [Suspect]
     Active Substance: PERTUZUMAB
     Dosage: 420 MILLIGRAM, Q.3WK.
     Route: 042
  8. TRASTUZUMAB [Suspect]
     Active Substance: TRASTUZUMAB
     Indication: Breast cancer metastatic
     Dosage: 328 MILLIGRAM, Q.3WK.
     Route: 042
  9. TRASTUZUMAB [Suspect]
     Active Substance: TRASTUZUMAB
     Dosage: 295 MILLIGRAM, Q.3WK.
     Route: 042
  10. TRASTUZUMAB [Suspect]
     Active Substance: TRASTUZUMAB
     Dosage: 194 MILLIGRAM, Q.3WK.
     Route: 042
  11. BENADRYL [Concomitant]
     Active Substance: DIPHENHYDRAMINE HYDROCHLORIDE
  12. MAGNESIUM [Concomitant]
     Active Substance: MAGNESIUM
  13. PACLITAXEL [Concomitant]
     Active Substance: PACLITAXEL
     Route: 042
  14. SOLU-MEDROL [Concomitant]
     Active Substance: METHYLPREDNISOLONE SODIUM SUCCINATE
  15. TAXOL [Concomitant]
     Active Substance: PACLITAXEL
     Route: 042
  16. TRAMADOL HYDROCHLORIDE [Concomitant]
     Active Substance: TRAMADOL HYDROCHLORIDE
  17. TRAZIMERA [Concomitant]
     Active Substance: TRASTUZUMAB-QYYP
  18. TRAMADOL HYDROCHLORIDE [Concomitant]
     Active Substance: TRAMADOL HYDROCHLORIDE
  19. HEPARIN SODIUM AND DEXTROSE [Suspect]
     Active Substance: HEPARIN SODIUM
     Route: 042

REACTIONS (50)
  - Abdominal pain [Unknown]
  - Asthenia [Unknown]
  - Blister [Unknown]
  - Blood creatine phosphokinase increased [Unknown]
  - Blood iron decreased [Unknown]
  - Blood magnesium decreased [Unknown]
  - Blood pressure decreased [Unknown]
  - Blood pressure diastolic decreased [Unknown]
  - Blood pressure systolic decreased [Unknown]
  - Blood test abnormal [Unknown]
  - Breast disorder [Unknown]
  - Constipation [Unknown]
  - Dry mouth [Unknown]
  - Dry skin [Unknown]
  - Dry throat [Unknown]
  - Dysmenorrhoea [Unknown]
  - Eczema [Unknown]
  - Electric shock sensation [Unknown]
  - Epistaxis [Unknown]
  - Faeces soft [Unknown]
  - Fatigue [Unknown]
  - Gingival pain [Unknown]
  - Hand dermatitis [Unknown]
  - Headache [Unknown]
  - Heart rate decreased [Unknown]
  - Hepatitis [Unknown]
  - Hyperaesthesia [Unknown]
  - Hypotension [Unknown]
  - Malaise [Unknown]
  - Malignant neoplasm progression [Unknown]
  - Muscular weakness [Unknown]
  - Myalgia [Unknown]
  - Nasopharyngitis [Unknown]
  - Nausea [Unknown]
  - Neoplasm progression [Unknown]
  - Pain [Unknown]
  - Palpitations [Unknown]
  - Paraesthesia [Unknown]
  - Pruritus [Unknown]
  - Recurrent cancer [Unknown]
  - Seasonal allergy [Unknown]
  - Skin fissures [Unknown]
  - Sneezing [Unknown]
  - Stress [Unknown]
  - Tumour marker increased [Unknown]
  - Urinary tract infection [Unknown]
  - Vulvovaginal pain [Unknown]
  - Weight decreased [Unknown]
  - Weight increased [Unknown]
  - Injection site haemorrhage [Unknown]
